FAERS Safety Report 9050849 (Version 1)
Quarter: 2013Q1

REPORT INFORMATION
  Report Type: Spontaneous
  Country: US (occurrence: US)
  Receive Date: 20130205
  Receipt Date: 20130205
  Transmission Date: 20140127
  Serious: No
  Sender: FDA-Public Use
  Company Number: US-BIOGENIDEC-2013BI008903

PATIENT
  Sex: Female
  Weight: 68 kg

DRUGS (6)
  1. TYSABRI [Suspect]
     Indication: MULTIPLE SCLEROSIS
     Route: 042
     Dates: start: 20120628
  2. AVONEX [Concomitant]
     Indication: MULTIPLE SCLEROSIS
     Route: 030
     Dates: start: 20091005, end: 201207
  3. AMPYRA [Concomitant]
     Indication: MULTIPLE SCLEROSIS
     Dates: start: 20091005
  4. REQUIP [Concomitant]
     Indication: PAIN MANAGEMENT
  5. MORPHINE SULPHATE [Concomitant]
     Indication: PAIN MANAGEMENT
  6. XANAX [Concomitant]
     Indication: PAIN MANAGEMENT

REACTIONS (2)
  - Ataxia [Unknown]
  - Depression [Unknown]
